FAERS Safety Report 24020760 (Version 1)
Quarter: 2024Q2

REPORT INFORMATION
  Report Type: Report from Study
  Country: DE (occurrence: DE)
  Receive Date: 20240627
  Receipt Date: 20240627
  Transmission Date: 20240716
  Serious: Yes (Hospitalization, Other)
  Sender: FDA-Public Use
  Company Number: DE-ABBVIE-5816196

PATIENT
  Age: 66 Year
  Sex: Male

DRUGS (9)
  1. SKYRIZI [Suspect]
     Active Substance: RISANKIZUMAB-RZAA
     Indication: Psoriatic arthropathy
     Route: 058
     Dates: start: 20240228
  2. SKYRIZI [Suspect]
     Active Substance: RISANKIZUMAB-RZAA
     Indication: Psoriasis
  3. AMPICILINA SULBACTAM [Concomitant]
     Indication: Antibiotic therapy
     Dosage: TIME INTERVAL: 0.33333333 DAYS
     Route: 042
     Dates: start: 20240523, end: 20240527
  4. CLINDAMYCIN [Concomitant]
     Active Substance: CLINDAMYCIN
     Indication: Antibiotic therapy
     Route: 048
     Dates: start: 20240611
  5. RIFAMPIN [Concomitant]
     Active Substance: RIFAMPIN
     Indication: Antibiotic therapy
     Route: 042
     Dates: start: 20240528, end: 20240610
  6. RIFAMPIN [Concomitant]
     Active Substance: RIFAMPIN
     Indication: Antibiotic therapy
     Route: 048
     Dates: start: 20240611
  7. FOSFOMYCIN [Concomitant]
     Active Substance: FOSFOMYCIN
     Indication: Antibiotic therapy
     Dosage: TIME INTERVAL: 0.33333333 DAYS
     Route: 042
     Dates: start: 20240523, end: 20240527
  8. VANCOMYCIN [Concomitant]
     Active Substance: VANCOMYCIN
     Indication: Antibiotic therapy
     Route: 042
     Dates: start: 20240528, end: 20240610
  9. AMLODIPINE [Concomitant]
     Active Substance: AMLODIPINE BESYLATE
     Indication: Product used for unknown indication
     Dates: start: 202404

REACTIONS (11)
  - Cervical vertebral fracture [Recovered/Resolved]
  - Neck pain [Unknown]
  - Arterial injury [Unknown]
  - Wound secretion [Recovered/Resolved]
  - Fall [Unknown]
  - Hypertension [Unknown]
  - Joint ankylosis [Unknown]
  - Spondylolysis [Recovered/Resolved]
  - Vertebral artery stenosis [Unknown]
  - Spinal fusion acquired [Unknown]
  - Spinal osteoarthritis [Unknown]

NARRATIVE: CASE EVENT DATE: 20240101
